FAERS Safety Report 4796667-9 (Version None)
Quarter: 2005Q4

REPORT INFORMATION
  Report Type: 
  Country: None (occurrence: None)
  Receive Date: 20051011
  Receipt Date: 20050811
  Transmission Date: 20060501
  Serious: Yes (Other)
  Sender: FDA-Public Use
  Company Number: US-JNJFOC-20050401610

PATIENT
  Age: 70 Year
  Sex: Female
  Weight: 45.3597 kg

DRUGS (11)
  1. ULTRACET [Suspect]
     Indication: ARTHRITIS
     Dosage: 1 DOSE(S), 2 IN 1 DAY, ORAL; SEE IMAGE
     Route: 048
     Dates: start: 20050401, end: 20050401
  2. ULTRACET [Suspect]
     Indication: PAIN
     Dosage: 1 DOSE(S), 2 IN 1 DAY, ORAL; SEE IMAGE
     Route: 048
     Dates: start: 20050401, end: 20050401
  3. ARTHRITIS MEDICATION (ANTIINFLAMMATORY/ANTIRHEUMATIC PRODUCTS) [Suspect]
     Indication: ARTHRITIS
  4. RELAFEN (NABUMTONE) TABLETS [Concomitant]
  5. THYROID MEDICATION (THYROID HORMONES) [Concomitant]
  6. DIURETIC (DIURETICS) [Concomitant]
  7. ZESTRIL [Concomitant]
  8. ASPIRIN [Concomitant]
  9. VITAMINS (VITAMINS) [Concomitant]
  10. MINERALS (MINERAL SUPPLEMENTS) [Concomitant]
  11. TYLENOL ARTHRITIS (ACETAMINOPHEN) TABLETS [Concomitant]

REACTIONS (6)
  - ACCELERATED HYPERTENSION [None]
  - CONSTIPATION [None]
  - GASTRIC DISORDER [None]
  - NAUSEA [None]
  - STOMACH DISCOMFORT [None]
  - VOMITING [None]
